FAERS Safety Report 14572358 (Version 1)
Quarter: 2018Q1

REPORT INFORMATION
  Report Type: Spontaneous
  Country: GB (occurrence: GB)
  Receive Date: 20180226
  Receipt Date: 20180226
  Transmission Date: 20180509
  Serious: Yes (Other)
  Sender: FDA-Public Use
  Company Number: GB-NOVOPROD-580355

PATIENT
  Age: 15 Year
  Sex: Male
  Weight: 55 kg

DRUGS (3)
  1. CALCIUM [Concomitant]
     Active Substance: CALCIUM
     Dosage: TABLETS
     Route: 065
  2. NOVORAPID [Suspect]
     Active Substance: INSULIN ASPART
     Indication: TYPE 1 DIABETES MELLITUS
     Dosage: 69.6 U, QD
     Route: 058
     Dates: end: 20180104
  3. NOVORAPID [Suspect]
     Active Substance: INSULIN ASPART
     Dosage: UNK
     Route: 058
     Dates: start: 20180105

REACTIONS (2)
  - Blood glucose increased [Recovered/Resolved]
  - Blood ketone body present [Recovered/Resolved]

NARRATIVE: CASE EVENT DATE: 20180103
